FAERS Safety Report 11102071 (Version 1)
Quarter: 2015Q2

REPORT INFORMATION
  Report Type: Spontaneous
  Country: NO (occurrence: NO)
  Receive Date: 20150511
  Receipt Date: 20150511
  Transmission Date: 20150821
  Serious: Yes (Hospitalization)
  Sender: FDA-Public Use
  Company Number: NO-CIPLA LTD.-2015NO03555

PATIENT

DRUGS (2)
  1. CARBOPLATIN. [Suspect]
     Active Substance: CARBOPLATIN
     Indication: NON-SMALL CELL LUNG CANCER STAGE III
     Dosage: AREA UNDER THE CURV 5 ON DAY 1 ADMINISTERED EVERY 3 WEEKS, 4 COURSES
     Route: 042
  2. VINORELBINE [Suspect]
     Active Substance: VINORELBINE\VINORELBINE TARTRATE
     Indication: NON-SMALL CELL LUNG CANCER STAGE III
     Dosage: 60 MG/M2 ON DAY 1 AND 8, 4 COURSES
     Route: 048

REACTIONS (1)
  - Adverse event [Unknown]
